FAERS Safety Report 12526523 (Version 3)
Quarter: 2017Q3

REPORT INFORMATION
  Report Type: Spontaneous
  Country: JP (occurrence: JP)
  Receive Date: 20160705
  Receipt Date: 20170911
  Transmission Date: 20171127
  Serious: Yes (Hospitalization)
  Sender: FDA-Public Use
  Company Number: JP-ACTELION-A-CH2012-67937

PATIENT
  Age: 13 Year
  Sex: Male

DRUGS (20)
  1. BRAZAVES [Suspect]
     Active Substance: MIGLUSTAT
     Indication: NIEMANN-PICK DISEASE
     Dosage: 100 MG, TID
     Route: 048
     Dates: start: 20120621, end: 20121022
  2. BRAZAVES [Suspect]
     Active Substance: MIGLUSTAT
     Dosage: 100 MG, BID
     Route: 048
     Dates: start: 20160517, end: 20160523
  3. ANAFRANIL [Concomitant]
     Active Substance: CLOMIPRAMINE HYDROCHLORIDE
  4. ONON [Concomitant]
     Active Substance: PRANLUKAST
     Dosage: UNK
  5. DIAPP [Concomitant]
     Active Substance: DIAZEPAM
  6. DEPAKENE [Concomitant]
     Active Substance: VALPROIC ACID
  7. BRAZAVES [Suspect]
     Active Substance: MIGLUSTAT
     Dosage: 100 MG, BID
     Route: 048
     Dates: start: 20121023, end: 20140709
  8. PHENOBARBITAL. [Concomitant]
     Active Substance: PHENOBARBITAL
  9. EXCEGRAN [Concomitant]
     Active Substance: ZONISAMIDE
  10. VIMPAT [Concomitant]
     Active Substance: LACOSAMIDE
  11. BRAZAVES [Suspect]
     Active Substance: MIGLUSTAT
     Dosage: 100 MG, TID
     Route: 048
     Dates: start: 20160524, end: 20160605
  12. DIAZEPAM. [Concomitant]
     Active Substance: DIAZEPAM
  13. MYSTAN [Concomitant]
     Active Substance: CLOBAZAM
  14. BRAZAVES [Suspect]
     Active Substance: MIGLUSTAT
     Dosage: 100 MG, QD
     Route: 048
     Dates: start: 20160510, end: 20160516
  15. ALEVIATIN [Concomitant]
     Active Substance: PHENYTOIN SODIUM
  16. BRAZAVES [Suspect]
     Active Substance: MIGLUSTAT
     Dosage: 100 MG, TID
     Route: 048
     Dates: start: 20140710, end: 20150317
  17. BRAZAVES [Suspect]
     Active Substance: MIGLUSTAT
     Dosage: 200 MG, BID
     Route: 048
     Dates: start: 20150318, end: 20160304
  18. BRAZAVES [Suspect]
     Active Substance: MIGLUSTAT
     Dosage: 200 MG, BID
     Route: 048
     Dates: start: 20160606, end: 20170522
  19. ALFACALCIDOL [Concomitant]
     Active Substance: ALFACALCIDOL
  20. FYCOMPA [Concomitant]
     Active Substance: PERAMPANEL

REACTIONS (5)
  - Bronchitis [Recovered/Resolved]
  - Constipation [Recovering/Resolving]
  - Gastroenteritis [Recovering/Resolving]
  - Diarrhoea [Recovering/Resolving]
  - Malnutrition [Recovering/Resolving]

NARRATIVE: CASE EVENT DATE: 20120622
